FAERS Safety Report 8830751 (Version 3)
Quarter: 2012Q4

REPORT INFORMATION
  Report Type: 
  Country: US (occurrence: US)
  Receive Date: 20121009
  Receipt Date: 20121121
  Transmission Date: 20130627
  Serious: Yes (Death)
  Sender: FDA-Public Use
  Company Number: US-PFIZER INC-2012246242

PATIENT
  Age: 35 Year
  Sex: Female
  Weight: 112.02 kg

DRUGS (4)
  1. DEPO-PROVERA [Suspect]
     Indication: CONTRACEPTION
     Dosage: 150 mg, every 3 months
     Dates: start: 20090908
  2. CYMBALTA [Concomitant]
     Dosage: UNK
  3. NEXIUM [Concomitant]
     Dosage: UNK
  4. DEPAKOTE [Concomitant]
     Dosage: UNK

REACTIONS (1)
  - Death [Fatal]
